FAERS Safety Report 15261447 (Version 2)
Quarter: 2018Q4

REPORT INFORMATION
  Report Type: Spontaneous
  Country: US (occurrence: US)
  Receive Date: 20180809
  Receipt Date: 20181013
  Transmission Date: 20190204
  Serious: Yes (Other)
  Sender: FDA-Public Use
  Company Number: PHEH2018US032423

PATIENT
  Age: 79 Year
  Sex: Male

DRUGS (1)
  1. ENTRESTO [Suspect]
     Active Substance: SACUBITRIL\VALSARTAN
     Indication: CARDIAC FAILURE
     Dosage: 100 MG, BID
     Route: 065

REACTIONS (4)
  - Dyspnoea [Recovering/Resolving]
  - Weight increased [Recovering/Resolving]
  - Cardiac failure [Recovering/Resolving]
  - Fluid retention [Recovering/Resolving]
